FAERS Safety Report 11891499 (Version 1)
Quarter: 2016Q1

REPORT INFORMATION
  Report Type: Spontaneous
  Country: US (occurrence: None)
  Receive Date: 20160105
  Receipt Date: 20160105
  Transmission Date: 20160526
  Serious: Yes (Hospitalization)
  Sender: FDA-Public Use
  Company Number: None

PATIENT
  Age: 39 Year
  Sex: Female
  Weight: 101.33 kg

DRUGS (1)
  1. BUPROPION. [Suspect]
     Active Substance: BUPROPION
     Indication: SMOKING CESSATION THERAPY
     Route: 048
     Dates: start: 20150921, end: 20150928

REACTIONS (7)
  - Chest pain [None]
  - Hallucination [None]
  - Delirium [None]
  - Mania [None]
  - Agitation [None]
  - Delusion [None]
  - No therapeutic response [None]

NARRATIVE: CASE EVENT DATE: 20151007
